FAERS Safety Report 8838380 (Version 3)
Quarter: 2013Q1

REPORT INFORMATION
  Report Type: Spontaneous
  Country: US (occurrence: US)
  Receive Date: 20121012
  Receipt Date: 20130109
  Transmission Date: 20140127
  Serious: Yes (Hospitalization, Other)
  Sender: FDA-Public Use
  Company Number: US-CELGENEUS-163-21880-12100768

PATIENT
  Age: 80 None
  Sex: Female

DRUGS (1)
  1. REVLIMID [Suspect]
     Indication: PLASMA CELL MYELOMA
     Dosage: 2 CAPSULES (20MG) ALTERNATING WITH 1 CAPSULE (10MG)
     Route: 048
     Dates: start: 201109, end: 20120924

REACTIONS (9)
  - Electrolyte imbalance [Recovered/Resolved]
  - Convulsion [Recovered/Resolved]
  - Confusional state [Recovered/Resolved]
  - Aspartate aminotransferase increased [Recovered/Resolved]
  - Alanine aminotransferase increased [Recovered/Resolved]
  - Epstein-Barr virus infection [Recovered/Resolved]
  - Asthenia [Recovered/Resolved]
  - Hypotension [Recovered/Resolved]
  - Dehydration [Recovered/Resolved]
